FAERS Safety Report 25469674 (Version 1)
Quarter: 2025Q2

REPORT INFORMATION
  Report Type: Spontaneous
  Country: US (occurrence: None)
  Receive Date: 20250623
  Receipt Date: 20250623
  Transmission Date: 20250717
  Serious: Yes (Other)
  Sender: FDA-CTU
  Company Number: None

PATIENT
  Age: 69 Year
  Sex: Female
  Weight: 63 kg

DRUGS (9)
  1. XARELTO [Suspect]
     Active Substance: RIVAROXABAN
     Indication: Atrial fibrillation
     Dosage: 1 TABLET DAILY ORAL ;?
     Route: 048
     Dates: start: 20231031
  2. ROSUVASTATIN [Concomitant]
     Active Substance: ROSUVASTATIN
  3. PROPAFENONE [Concomitant]
     Active Substance: PROPAFENONE
  4. TOLTERODINE [Concomitant]
     Active Substance: TOLTERODINE
  5. DCOq10 [Concomitant]
  6. PROBIOTICS NOS [Concomitant]
     Active Substance: PROBIOTICS NOS
  7. VITAMIN D NOS [Concomitant]
     Active Substance: CHOLECALCIFEROL\ERGOCALCIFEROL
  8. COLLAGEN PEPTIDES [Concomitant]
  9. ELIQUIS [Suspect]
     Active Substance: APIXABAN

REACTIONS (1)
  - Photosensitivity reaction [None]

NARRATIVE: CASE EVENT DATE: 20240320
